FAERS Safety Report 14389750 (Version 2)
Quarter: 2018Q1

REPORT INFORMATION
  Report Type: Spontaneous
  Country: NL (occurrence: NL)
  Receive Date: 20180115
  Receipt Date: 20180123
  Transmission Date: 20180509
  Serious: Yes (Other)
  Sender: FDA-Public Use
  Company Number: NL-ALLERGAN-1801555US

PATIENT

DRUGS (1)
  1. URSODEOXYCHOLIC ACID UNK [Suspect]
     Active Substance: URSODIOL
     Indication: LIVER DISORDER
     Dosage: 15-20 MG/KG/DAY
     Route: 065

REACTIONS (2)
  - Hepatic cirrhosis [Unknown]
  - Off label use [Unknown]
